FAERS Safety Report 4724649-1 (Version None)
Quarter: 2005Q3

REPORT INFORMATION
  Report Type: 
  Country: None (occurrence: None)
  Receive Date: 20050726
  Receipt Date: 20050714
  Transmission Date: 20060218
  Serious: Yes (Disabling)
  Sender: FDA-Public Use
  Company Number: US-MERCK-0507USA01963

PATIENT
  Age: 66 Year
  Sex: Female

DRUGS (16)
  1. FOSAMAX [Suspect]
     Indication: OSTEOPOROSIS
     Route: 048
     Dates: start: 19960101
  2. FOSAMAX [Suspect]
     Route: 048
     Dates: end: 20040101
  3. TOPROL-XL [Concomitant]
     Route: 065
  4. AMBIEN [Concomitant]
     Route: 065
  5. PROTONIX [Concomitant]
     Route: 065
  6. DARVOCET-N 100 [Concomitant]
     Route: 065
  7. LASIX [Concomitant]
     Route: 065
  8. VIOXX [Concomitant]
     Route: 048
  9. MAXZIDE [Concomitant]
     Route: 065
  10. PREMARIN [Concomitant]
     Route: 065
  11. ASPIRIN [Concomitant]
     Route: 065
  12. NEURONTIN [Concomitant]
     Route: 065
  13. REGLAN [Concomitant]
     Route: 065
  14. AVALIDE [Concomitant]
     Route: 065
  15. SERAX [Concomitant]
     Route: 065
  16. KLONOPIN [Concomitant]
     Route: 065

REACTIONS (3)
  - ACUTE FEBRILE NEUTROPHILIC DERMATOSIS [None]
  - LOW TURNOVER OSTEOPATHY [None]
  - STRESS FRACTURE [None]
